FAERS Safety Report 14536747 (Version 1)
Quarter: 2018Q1

REPORT INFORMATION
  Report Type: Spontaneous
  Country: DE (occurrence: DE)
  Receive Date: 20180215
  Receipt Date: 20180215
  Transmission Date: 20180509
  Serious: Yes (Hospitalization)
  Sender: FDA-Public Use
  Company Number: DE-TEVA-2018-DE-854970

PATIENT
  Age: 58 Year
  Sex: Female

DRUGS (1)
  1. SIMVASTATIN RATIOPHARM [Suspect]
     Active Substance: SIMVASTATIN
     Route: 065

REACTIONS (3)
  - Hypertension [Recovering/Resolving]
  - Hypokalaemia [Recovering/Resolving]
  - Rhabdomyolysis [Recovering/Resolving]

NARRATIVE: CASE EVENT DATE: 201712
